FAERS Safety Report 16869763 (Version 4)
Quarter: 2023Q1

REPORT INFORMATION
  Report Type: Report from Study
  Country: US (occurrence: US)
  Receive Date: 20190930
  Receipt Date: 20230113
  Transmission Date: 20230417
  Serious: Yes (Hospitalization, Other)
  Sender: FDA-Public Use
  Company Number: US-PFIZER INC-2014183205

PATIENT
  Age: 88 Year
  Sex: Female
  Weight: 58 kg

DRUGS (3)
  1. LYRICA [Suspect]
     Active Substance: PREGABALIN
     Indication: Neuropathy peripheral
     Dosage: 1 DF, 1X/DAY REGIMEN DOSE UNIT: DOSAGE FORM
     Route: 065
  2. LYRICA [Suspect]
     Active Substance: PREGABALIN
     Indication: Pain
     Dosage: 75 MG, UNK
     Route: 065
  3. LYRICA [Suspect]
     Active Substance: PREGABALIN
     Dosage: 75 MG, 2X/DAY REGIMEN DOSE UNIT: MILLIGRAM
     Route: 048
     Dates: end: 201909

REACTIONS (5)
  - Palpitations [Recovering/Resolving]
  - Expired product administered [Unknown]
  - Intentional product use issue [Unknown]
  - Illness [Unknown]
  - Fatigue [Unknown]

NARRATIVE: CASE EVENT DATE: 20190923
